APPROVED DRUG PRODUCT: NOXAFIL
Active Ingredient: POSACONAZOLE
Strength: 40MG/ML
Dosage Form/Route: SUSPENSION;ORAL
Application: N022003 | Product #001 | TE Code: AB
Applicant: SCHERING CORP
Approved: Sep 15, 2006 | RLD: Yes | RS: Yes | Type: RX